FAERS Safety Report 5581320-4 (Version None)
Quarter: 2008Q1

REPORT INFORMATION
  Report Type: 
  Country: None (occurrence: None)
  Receive Date: 20080104
  Receipt Date: 20071226
  Transmission Date: 20080703
  Serious: Yes (Other)
  Sender: FDA-Public Use
  Company Number: PHBS2007BR21388

PATIENT
  Age: 73 Year
  Sex: Male

DRUGS (3)
  1. FORASEQ [Suspect]
     Indication: ALLERGIC BRONCHITIS
  2. FORASEQ [Suspect]
     Dosage: 1 DF, ONCE/SINGLE
     Route: 048
     Dates: start: 20071226, end: 20071226
  3. DRUG THERAPY NOS [Concomitant]

REACTIONS (3)
  - CONFUSIONAL STATE [None]
  - HAEMORRHAGIC STROKE [None]
  - INCORRECT ROUTE OF DRUG ADMINISTRATION [None]
